FAERS Safety Report 9009283 (Version 1)
Quarter: 2013Q1

REPORT INFORMATION
  Report Type: Spontaneous
  Country: AF (occurrence: DE)
  Receive Date: 20130111
  Receipt Date: 20130111
  Transmission Date: 20140127
  Serious: Yes (Congenital Anomaly)
  Sender: FDA-Public Use
  Company Number: AF-GLAXOSMITHKLINE-D0077472B

PATIENT
  Sex: 0

DRUGS (3)
  1. ATMADISC [Suspect]
     Indication: ASTHMA
     Dosage: 300MCG TWICE PER DAY
     Route: 064
     Dates: start: 20090623, end: 201209
  2. SINGULAIR [Concomitant]
     Indication: ASTHMA
     Dosage: 10MG PER DAY
     Route: 064
     Dates: start: 20090623, end: 201209
  3. EUTHYROX [Concomitant]
     Indication: HYPOTHYROIDISM
     Dosage: 75MCG PER DAY
     Route: 048
     Dates: start: 2005

REACTIONS (2)
  - Foetal malformation [Unknown]
  - Foetal exposure during pregnancy [Unknown]
